FAERS Safety Report 11289386 (Version 6)
Quarter: 2019Q1

REPORT INFORMATION
  Report Type: Report from Study
  Country: CA (occurrence: CA)
  Receive Date: 20150721
  Receipt Date: 20190330
  Transmission Date: 20190417
  Serious: Yes (Other)
  Sender: FDA-Public Use
  Company Number: CA-UCBSA-2015023071

PATIENT
  Sex: Female

DRUGS (12)
  1. TYLENOL WITH CODEINE [Concomitant]
     Active Substance: ACETAMINOPHEN\CODEINE PHOSPHATE
     Indication: PRODUCT USED FOR UNKNOWN INDICATION
     Dosage: UNK, 2X/DAY (BID)
     Dates: start: 20151013
  2. NUCYNTA [Concomitant]
     Active Substance: TAPENTADOL HYDROCHLORIDE
     Indication: PRODUCT USED FOR UNKNOWN INDICATION
     Dosage: 50 MG, 3X/DAY (TID)
     Dates: start: 20151013
  3. CERTOLIZUMAB PEGOL RA [Suspect]
     Active Substance: CERTOLIZUMAB PEGOL
     Indication: RHEUMATOID ARTHRITIS
     Dosage: 400 MG, EV 2 WEEKS(QOW)
     Route: 058
     Dates: start: 20150422, end: 20150520
  4. CERTOLIZUMAB PEGOL RA [Suspect]
     Active Substance: CERTOLIZUMAB PEGOL
     Dosage: 200 MG, EV 2 WEEKS(QOW)
     Route: 058
     Dates: start: 20150603, end: 201507
  5. PLAQUENIL [Concomitant]
     Active Substance: HYDROXYCHLOROQUINE SULFATE
     Indication: PRODUCT USED FOR UNKNOWN INDICATION
     Dosage: 200 MG, 2X/DAY (BID)
     Dates: start: 20151013
  6. METHOTREXATE. [Suspect]
     Active Substance: METHOTREXATE
     Indication: PRODUCT USED FOR UNKNOWN INDICATION
     Dosage: UNK
  7. METHOTREXATE. [Suspect]
     Active Substance: METHOTREXATE
     Dosage: 20 MG, WEEKLY (QW)
     Dates: start: 20151013
  8. FOLIC ACID. [Concomitant]
     Active Substance: FOLIC ACID
     Indication: PRODUCT USED FOR UNKNOWN INDICATION
     Dosage: 1 MG, ONCE DAILY (QD)
     Dates: start: 20151013
  9. CELEBREX [Concomitant]
     Active Substance: CELECOXIB
     Indication: PRODUCT USED FOR UNKNOWN INDICATION
     Dosage: 200 MG, 2X/DAY (BID)
     Dates: start: 20151013
  10. CERTOLIZUMAB PEGOL RA [Suspect]
     Active Substance: CERTOLIZUMAB PEGOL
     Dosage: 200 MG, EV 2 WEEKS(QOW)
     Route: 058
     Dates: start: 20150804, end: 201510
  11. WELLBUTRIN [Concomitant]
     Active Substance: BUPROPION HYDROCHLORIDE
     Indication: PRODUCT USED FOR UNKNOWN INDICATION
     Dosage: 150 MG, 2X/DAY (BID)
     Dates: start: 20151013
  12. FLEXERIL [Concomitant]
     Active Substance: CYCLOBENZAPRINE HYDROCHLORIDE
     Indication: PRODUCT USED FOR UNKNOWN INDICATION
     Dosage: AT BED TIME,PRN
     Dates: start: 20151013

REACTIONS (11)
  - Cough [Recovered/Resolved]
  - Gait disturbance [Recovered/Resolved]
  - Arthralgia [Recovering/Resolving]
  - Oral herpes [Recovering/Resolving]
  - Asthenia [Recovered/Resolved]
  - Pain [Recovered/Resolved]
  - Bronchitis [Unknown]
  - Pharyngitis [Recovered/Resolved]
  - Nasopharyngitis [Recovered/Resolved]
  - Oropharyngeal pain [Recovering/Resolving]
  - Pneumonia [Recovering/Resolving]

NARRATIVE: CASE EVENT DATE: 2015
